FAERS Safety Report 6945407-3 (Version None)
Quarter: 2010Q3

REPORT INFORMATION
  Report Type: 
  Country: None (occurrence: None)
  Receive Date: 20100827
  Receipt Date: 20100817
  Transmission Date: 20110219
  Serious: Yes (Other)
  Sender: FDA-Public Use
  Company Number: PHHY2010CA54649

PATIENT
  Sex: Female

DRUGS (1)
  1. EXELON [Suspect]
     Dosage: UNK
     Route: 062
     Dates: start: 20100225, end: 20100612

REACTIONS (2)
  - ACUTE PULMONARY OEDEMA [None]
  - CARDIAC FIBRILLATION [None]
